FAERS Safety Report 9235513 (Version 1)
Quarter: 2013Q2

REPORT INFORMATION
  Report Type: Spontaneous
  Country: US (occurrence: None)
  Receive Date: 20130416
  Receipt Date: 20130416
  Transmission Date: 20140414
  Serious: Yes (Hospitalization)
  Sender: FDA-Public Use
  Company Number: None

PATIENT
  Age: 51 Year
  Sex: Female
  Weight: 75 kg

DRUGS (4)
  1. 5-FLUOROURACIL [Suspect]
     Dates: end: 20120720
  2. CYCLOPHOSPHAMIDE [Suspect]
     Dates: end: 20120720
  3. EPIRUBICIN [Suspect]
     Dates: end: 20120720
  4. TAMOXIFEN [Concomitant]

REACTIONS (3)
  - Leukaemia monocytic [None]
  - Acute leukaemia [None]
  - Acute myeloid leukaemia [None]
